FAERS Safety Report 5859897-0 (Version None)
Quarter: 2008Q3

REPORT INFORMATION
  Report Type: 
  Country: None (occurrence: None)
  Receive Date: 20080827
  Receipt Date: 20080822
  Transmission Date: 20090109
  Serious: Yes (Life-Threatening)
  Sender: FDA-Public Use
  Company Number: JP-AVENTIS-200811898JP

PATIENT
  Age: 77 Year
  Sex: Female
  Weight: 55 kg

DRUGS (15)
  1. AMARYL [Suspect]
     Indication: DIABETES MELLITUS
     Route: 048
     Dates: start: 20060612, end: 20080619
  2. MIYA BM [Concomitant]
     Dosage: DOSE: 6 TABLETS/DAY
     Route: 048
     Dates: start: 20080529, end: 20080604
  3. ALBUMIN TANNATE [Concomitant]
     Route: 048
     Dates: start: 20080529, end: 20080604
  4. CRAVIT [Concomitant]
     Route: 048
     Dates: start: 20080529, end: 20080604
  5. BASEN [Concomitant]
     Indication: DIABETES MELLITUS
     Route: 048
  6. ZYLORIC [Concomitant]
     Route: 048
  7. LIPIDIL [Concomitant]
     Dosage: DOSE QUANTITY: 100
     Route: 048
  8. WARFARIN SODIUM [Concomitant]
     Dosage: DOSE: 1.5 TABLETS/DAY
  9. LASIX [Concomitant]
  10. SELBEX [Concomitant]
     Dosage: DOSE: 3 TABLETS/DAY
  11. ARTIST [Concomitant]
     Indication: HYPERTENSION
     Route: 048
  12. LANSOPRAZOLE [Concomitant]
     Route: 048
  13. ALDACTONE [Concomitant]
     Indication: HYPERTENSION
     Route: 048
  14. GASMOTIN [Concomitant]
     Indication: GASTRITIS
     Route: 048
  15. MAGNESIUM OXIDE [Concomitant]
     Indication: CONSTIPATION
     Route: 048

REACTIONS (1)
  - IDIOPATHIC THROMBOCYTOPENIC PURPURA [None]
